FAERS Safety Report 19588763 (Version 1)
Quarter: 2021Q3

REPORT INFORMATION
  Report Type: Spontaneous
  Country: US (occurrence: US)
  Receive Date: 20210721
  Receipt Date: 20210721
  Transmission Date: 20211014
  Serious: No
  Sender: FDA-Public Use
  Company Number: None

PATIENT
  Sex: Female

DRUGS (1)
  1. OCREVUS [Suspect]
     Active Substance: OCRELIZUMAB

REACTIONS (8)
  - Pain [None]
  - Withdrawal syndrome [None]
  - Dysstasia [None]
  - Anger [None]
  - Chills [None]
  - Feeling abnormal [None]
  - Insomnia [None]
  - Euphoric mood [None]
